FAERS Safety Report 8139823-4 (Version None)
Quarter: 2012Q1

REPORT INFORMATION
  Report Type: 
  Country: None (occurrence: None)
  Receive Date: 20120215
  Receipt Date: 20120206
  Transmission Date: 20120608
  Serious: Yes (Other)
  Sender: FDA-Public Use
  Company Number: US-ABBOTT-12P-163-0901183-00

PATIENT
  Sex: Female
  Weight: 76.272 kg

DRUGS (14)
  1. SYNTHROID [Suspect]
     Route: 048
     Dates: start: 20100101
  2. HYDROCORTISONE [Suspect]
     Indication: BLOOD CORTISOL DECREASED
     Route: 048
  3. DETROL LA [Concomitant]
     Indication: PRODUCT USED FOR UNKNOWN INDICATION
  4. SYNTHROID [Suspect]
     Indication: HYPOTHYROIDISM
     Route: 048
  5. CLARITIN [Concomitant]
     Indication: PRODUCT USED FOR UNKNOWN INDICATION
  6. ARMODAFINIL [Concomitant]
     Indication: SINUSITIS
  7. PROPRANOLOL [Concomitant]
     Indication: HEART RATE INCREASED
  8. NEXIUM [Concomitant]
     Indication: PRODUCT USED FOR UNKNOWN INDICATION
  9. HYDROCORTISONE [Suspect]
     Dosage: TAKING HALF PILL DAILY
     Route: 048
  10. LEVOTHYROXINE SODIUM [Concomitant]
     Dates: start: 20090101, end: 20100101
  11. FUROSEMIDE [Concomitant]
     Indication: PRODUCT USED FOR UNKNOWN INDICATION
  12. SYNTHROID [Suspect]
     Route: 048
  13. THYROID TAB [Concomitant]
     Indication: HYPOTHYROIDISM
  14. LEVOTHYROXINE SODIUM [Concomitant]
     Indication: HYPOTHYROIDISM
     Dosage: RECEIVED FROM A COUMPOUNDING PHARMACY.

REACTIONS (7)
  - LOCAL SWELLING [None]
  - PITUITARY-DEPENDENT CUSHING'S SYNDROME [None]
  - BLOOD GLUCOSE INCREASED [None]
  - ILL-DEFINED DISORDER [None]
  - HEART RATE INCREASED [None]
  - SINUSITIS [None]
  - PITUITARY TUMOUR [None]
